FAERS Safety Report 9513533 (Version 4)
Quarter: 2013Q4

REPORT INFORMATION
  Report Type: Spontaneous
  Country: US (occurrence: US)
  Receive Date: 20130910
  Receipt Date: 20131205
  Transmission Date: 20140711
  Serious: Yes (Life-Threatening, Hospitalization)
  Sender: FDA-Public Use
  Company Number: US-BAYER-2013-107498

PATIENT
  Age: 34 Year
  Sex: Female
  Weight: 58.96 kg

DRUGS (2)
  1. MIRENA [Suspect]
     Indication: CONTRACEPTION
     Dosage: 20 MCG/24HR, CONT
     Route: 015
     Dates: start: 20091113, end: 20100917
  2. MULTIVITAMIN [Concomitant]
     Dosage: UNK, 1 PER DAY

REACTIONS (15)
  - Uterine perforation [None]
  - Infection [None]
  - Abdominal pain [None]
  - Injury [None]
  - Pain [None]
  - General physical health deterioration [None]
  - Anxiety [None]
  - Anhedonia [None]
  - Emotional distress [None]
  - Depression [None]
  - Feeling abnormal [None]
  - Fatigue [None]
  - Memory impairment [None]
  - Mood swings [None]
  - Menorrhagia [None]
